FAERS Safety Report 22113988 (Version 1)
Quarter: 2023Q1

REPORT INFORMATION
  Report Type: Spontaneous
  Country: US (occurrence: US)
  Receive Date: 20230320
  Receipt Date: 20230320
  Transmission Date: 20230417
  Serious: No
  Sender: FDA-Public Use
  Company Number: US-SA-SAC20230315000843

PATIENT
  Sex: Female

DRUGS (1)
  1. AUBAGIO [Suspect]
     Active Substance: TERIFLUNOMIDE
     Indication: Multiple sclerosis
     Dosage: 14 MG, QD
     Route: 048
     Dates: start: 20190814

REACTIONS (9)
  - Sleep disorder [Unknown]
  - Hyperhidrosis [Unknown]
  - Bladder discomfort [Unknown]
  - Abdominal discomfort [Unknown]
  - Musculoskeletal stiffness [Unknown]
  - Muscle spasticity [Unknown]
  - Sexual dysfunction [Unknown]
  - Fatigue [Unknown]
  - Paraesthesia [Unknown]
